FAERS Safety Report 18240067 (Version 1)
Quarter: 2020Q3

REPORT INFORMATION
  Report Type: Spontaneous
  Country: US (occurrence: US)
  Receive Date: 20200908
  Receipt Date: 20200908
  Transmission Date: 20201103
  Serious: Yes (Hospitalization)
  Sender: FDA-Public Use
  Company Number: US-BEH-2020122152

PATIENT
  Age: 30 Year
  Sex: Female

DRUGS (16)
  1. TRAZODONE [Concomitant]
     Active Substance: TRAZODONE HYDROCHLORIDE
     Route: 065
  2. CYCLOBENZAPRINE. [Concomitant]
     Active Substance: CYCLOBENZAPRINE
     Route: 065
  3. FLUTICASONE. [Concomitant]
     Active Substance: FLUTICASONE
     Route: 065
  4. TOPIRAMATE. [Concomitant]
     Active Substance: TOPIRAMATE
     Route: 065
  5. PRIVIGEN [Suspect]
     Active Substance: HUMAN IMMUNOGLOBULIN G
     Dosage: UNK
     Route: 042
  6. PRIVIGEN [Suspect]
     Active Substance: HUMAN IMMUNOGLOBULIN G
     Dosage: UNK
     Route: 042
  7. PROMETHAZINE [Concomitant]
     Active Substance: PROMETHAZINE HYDROCHLORIDE
     Route: 065
  8. STELARA [Concomitant]
     Active Substance: USTEKINUMAB
     Dosage: 90 MG/ML
     Route: 065
  9. OLANZAPINE. [Concomitant]
     Active Substance: OLANZAPINE
     Route: 065
  10. DIAZEPAM. [Concomitant]
     Active Substance: DIAZEPAM
     Route: 065
  11. OXCARBAZEPINE. [Concomitant]
     Active Substance: OXCARBAZEPINE
     Route: 065
  12. PRIVIGEN [Suspect]
     Active Substance: HUMAN IMMUNOGLOBULIN G
     Indication: IMMUNODEFICIENCY COMMON VARIABLE
     Dosage: 30 GRAM EVERY 40 WEEKS
     Route: 042
     Dates: start: 20200720
  13. ZUPLENZ [Concomitant]
     Active Substance: ONDANSETRON
     Route: 065
  14. HYDROMORPHONE [Concomitant]
     Active Substance: HYDROMORPHONE
     Route: 065
  15. DIPHENHYDRAMINE. [Concomitant]
     Active Substance: DIPHENHYDRAMINE
     Route: 065
  16. METHYLPREDNISOLONE ACETATE. [Concomitant]
     Active Substance: METHYLPREDNISOLONE ACETATE
     Indication: IMMUNODEFICIENCY COMMON VARIABLE
     Dosage: 30 UNK
     Route: 065

REACTIONS (1)
  - Stoma obstruction [Not Recovered/Not Resolved]

NARRATIVE: CASE EVENT DATE: 20200901
